FAERS Safety Report 23970004 (Version 2)
Quarter: 2024Q2

REPORT INFORMATION
  Report Type: Spontaneous
  Country: PT (occurrence: PT)
  Receive Date: 20240613
  Receipt Date: 20240621
  Transmission Date: 20240716
  Serious: Yes (Other)
  Sender: FDA-Public Use
  Company Number: PT-JNJFOC-20240575787

PATIENT
  Age: 23 Year
  Sex: Male

DRUGS (3)
  1. ZOLPIDEM [Suspect]
     Active Substance: ZOLPIDEM TARTRATE
     Indication: Mental disorder
     Dosage: 10 MILLIGRAM, ONCE A DAY
     Route: 065
  2. MEXAZOLAM [Suspect]
     Active Substance: MEXAZOLAM
     Indication: Mental disorder
     Dosage: 1 MILLIGRAM, ONCE A DAY
     Route: 065
  3. PALIPERIDONE [Suspect]
     Active Substance: PALIPERIDONE
     Indication: Mental disorder
     Dosage: 9 MILLIGRAM, ONCE A DAY
     Route: 048

REACTIONS (1)
  - Hypogammaglobulinaemia [Recovering/Resolving]
